FAERS Safety Report 9605858 (Version 2)
Quarter: 2013Q4

REPORT INFORMATION
  Report Type: Spontaneous
  Country: US (occurrence: US)
  Receive Date: 20131008
  Receipt Date: 20131008
  Transmission Date: 20140711
  Serious: Yes (Hospitalization)
  Sender: FDA-Public Use
  Company Number: US-TAKEDA-TPA2013A07567

PATIENT
  Sex: 0

DRUGS (2)
  1. OSENI [Suspect]
     Indication: TYPE 2 DIABETES MELLITUS
     Dosage: 25/30 DAY
     Dates: end: 20130726
  2. METFORMIN [Concomitant]
     Indication: DIABETES MELLITUS
     Route: 048

REACTIONS (5)
  - Hypertension [Recovered/Resolved]
  - Hypotension [Recovered/Resolved]
  - Fluid retention [Recovered/Resolved]
  - Feeling abnormal [Unknown]
  - Weight increased [Unknown]
